FAERS Safety Report 5747105-0 (Version None)
Quarter: 2008Q2

REPORT INFORMATION
  Report Type: 
  Country: None (occurrence: None)
  Receive Date: 20080522
  Receipt Date: 20080516
  Transmission Date: 20081010
  Serious: Yes (Other)
  Sender: FDA-Public Use
  Company Number: PHHY2008FI08052

PATIENT
  Age: 76 Year
  Sex: Female

DRUGS (2)
  1. ZOMETA [Suspect]
     Indication: METASTASES TO BONE
     Dosage: FIVE TIMES AT ONE MONTH INTERVAL
     Dates: start: 20070601
  2. FEMAR [Concomitant]
     Dosage: 2.5 MG, QD
     Route: 048
     Dates: start: 20070601

REACTIONS (2)
  - BONE DISORDER [None]
  - OSTEONECROSIS [None]
